FAERS Safety Report 4913063-1 (Version None)
Quarter: 2006Q1

REPORT INFORMATION
  Report Type: 
  Country: None (occurrence: None)
  Receive Date: 20060210
  Receipt Date: 20060202
  Transmission Date: 20060701
  Serious: Yes (Other)
  Sender: FDA-Public Use
  Company Number: 2006016699

PATIENT
  Age: 14 Year
  Sex: Female

DRUGS (1)
  1. DRAMAMINE [Suspect]
     Indication: NAUSEA
     Dosage: APPROXIMATELY 15 TABLETS, ORAL
     Route: 048
     Dates: start: 20060202, end: 20060202

REACTIONS (3)
  - CONVULSION [None]
  - OVERDOSE [None]
  - VOMITING [None]
